FAERS Safety Report 9970590 (Version 1)
Quarter: 2014Q1

REPORT INFORMATION
  Report Type: Report from Study
  Country: JP (occurrence: JP)
  Receive Date: 20140306
  Receipt Date: 20140306
  Transmission Date: 20141002
  Serious: Yes (Hospitalization)
  Sender: FDA-Public Use
  Company Number: JP-VERTEX PHARMACEUTICALS INC-2014-001067

PATIENT
  Age: 56 Year
  Sex: Female

DRUGS (9)
  1. VX-950 (TELAPREVIR) [Suspect]
     Indication: CHRONIC HEPATITIS C
     Dosage: 2250 MG, QD
     Route: 048
     Dates: start: 20120910, end: 20120930
  2. VX-950 (TELAPREVIR) [Suspect]
     Dosage: 1500 MG, QD
     Route: 048
     Dates: start: 20121001, end: 20121210
  3. REBETOL [Suspect]
     Indication: CHRONIC HEPATITIS C
     Dosage: 800 MG, QD
     Route: 048
     Dates: start: 20120910, end: 20120923
  4. REBETOL [Suspect]
     Dosage: 600 MG, QD
     Route: 048
     Dates: start: 20120924, end: 20121014
  5. REBETOL [Suspect]
     Dosage: 400 MG, QD
     Route: 048
     Dates: start: 20121015
  6. PEGINTERFERON ALFA-2B [Suspect]
     Indication: CHRONIC HEPATITIS C
     Dosage: 1.5 ?G/KG, QW
     Route: 058
     Dates: start: 20120910
  7. URSO [Concomitant]
     Dosage: 600 MG, QD
     Route: 048
     Dates: end: 20121001
  8. PARIET [Concomitant]
     Dosage: 10 MG, QD
     Route: 048
     Dates: start: 20120911, end: 20121121
  9. GOODMIN [Concomitant]
     Dosage: 0.25 MG, PRN
     Route: 048
     Dates: start: 20120918, end: 20120929

REACTIONS (1)
  - Drug eruption [Recovering/Resolving]
